FAERS Safety Report 15826995 (Version 1)
Quarter: 2018Q4

REPORT INFORMATION
  Report Type: Spontaneous
  Country: US (occurrence: US)
  Receive Date: 20181218
  Receipt Date: 20181218
  Transmission Date: 20190205
  Serious: Yes (Other)
  Sender: FDA-Public Use
  Company Number: None

PATIENT
  Age: 26 Year
  Sex: Male
  Weight: 118.84 kg

DRUGS (1)
  1. GABAPENTIN. [Suspect]
     Active Substance: GABAPENTIN
     Indication: PAIN
     Dosage: MG PO
     Route: 048
     Dates: start: 20180725, end: 20180815

REACTIONS (5)
  - Impulsive behaviour [None]
  - Alcohol abuse [None]
  - Hypersexuality [None]
  - Agitation [None]
  - Gambling [None]
